FAERS Safety Report 15779291 (Version 3)
Quarter: 2019Q2

REPORT INFORMATION
  Report Type: Spontaneous
  Country: US (occurrence: US)
  Receive Date: 20190101
  Receipt Date: 20190614
  Transmission Date: 20190711
  Serious: No
  Sender: FDA-Public Use
  Company Number: US-PFIZER INC-2018532000

PATIENT
  Age: 56 Year
  Sex: Male
  Weight: 104.33 kg

DRUGS (3)
  1. METOPROLOL. [Concomitant]
     Active Substance: METOPROLOL
     Indication: HYPERTENSION
     Dosage: 25 MG, 2X/DAY
  2. LOVASTATIN. [Concomitant]
     Active Substance: LOVASTATIN
     Dosage: UNK
  3. CHANTIX [Suspect]
     Active Substance: VARENICLINE TARTRATE
     Indication: SMOKING CESSATION THERAPY
     Dosage: 10 MG, 2X/DAY
     Dates: start: 20180501, end: 2018

REACTIONS (3)
  - Product dose omission [Unknown]
  - Drug withdrawal syndrome [Not Recovered/Not Resolved]
  - Overdose [Unknown]
